FAERS Safety Report 8795830 (Version 1)
Quarter: 2012Q4

REPORT INFORMATION
  Report Type: Report from Study
  Country: CA (occurrence: CA)
  Receive Date: 20120919
  Receipt Date: 20120919
  Transmission Date: 20130627
  Serious: Yes (Other)
  Sender: FDA-Public Use
  Company Number: CA-ABBOTT-12P-028-0978193-00

PATIENT
  Age: 34 None
  Sex: Male
  Weight: 90.35 kg

DRUGS (1)
  1. HUMIRA [Suspect]
     Indication: CROHN^S DISEASE
     Route: 058
     Dates: start: 20090630, end: 201208

REACTIONS (2)
  - Ligament rupture [Recovering/Resolving]
  - Nausea [Recovered/Resolved]
